FAERS Safety Report 5773931-8 (Version None)
Quarter: 2008Q2

REPORT INFORMATION
  Report Type: 
  Country: None (occurrence: None)
  Receive Date: 20080616
  Receipt Date: 20080612
  Transmission Date: 20081010
  Serious: Yes (Hospitalization)
  Sender: FDA-Public Use
  Company Number: B0524989A

PATIENT
  Age: 85 Year
  Sex: Male

DRUGS (5)
  1. NABUMETONE [Suspect]
     Indication: DRUG USE FOR UNKNOWN INDICATION
     Route: 048
     Dates: start: 20080328, end: 20080404
  2. ACETAMINOPHEN [Suspect]
     Indication: DRUG USE FOR UNKNOWN INDICATION
     Route: 048
     Dates: start: 20080328, end: 20080404
  3. CELEBREX [Suspect]
     Indication: DRUG USE FOR UNKNOWN INDICATION
     Route: 048
     Dates: start: 20080404, end: 20080407
  4. DIALGIREX [Suspect]
     Indication: DRUG USE FOR UNKNOWN INDICATION
     Route: 048
     Dates: start: 20080404, end: 20080407
  5. LASILIX [Concomitant]
     Route: 048
     Dates: end: 20080407

REACTIONS (7)
  - BACK PAIN [None]
  - DIARRHOEA [None]
  - FALL [None]
  - HYPONATRAEMIA [None]
  - NAUSEA [None]
  - OEDEMA PERIPHERAL [None]
  - VOMITING [None]
